FAERS Safety Report 14301159 (Version 1)
Quarter: 2017Q4

REPORT INFORMATION
  Report Type: Spontaneous
  Country: US (occurrence: US)
  Receive Date: 20171218
  Receipt Date: 20171218
  Transmission Date: 20180321
  Serious: Yes (Other)
  Sender: FDA-Public Use
  Company Number: None

PATIENT
  Age: 37 Year
  Sex: Female
  Weight: 74.25 kg

DRUGS (5)
  1. FISH OIL [Concomitant]
     Active Substance: FISH OIL
  2. DOXYCYCLINE MONOHYDRATE [Suspect]
     Active Substance: DOXYCYCLINE
     Indication: HUMAN EHRLICHIOSIS
     Dosage: ?          QUANTITY:1 CAPSULE(S);?
     Route: 048
     Dates: start: 20171014, end: 20171105
  3. MULTIVITAMIN [Concomitant]
     Active Substance: VITAMINS
  4. DOXYCYCLINE MONOHYDRATE [Suspect]
     Active Substance: DOXYCYCLINE
     Indication: LYME DISEASE
     Dosage: ?          QUANTITY:1 CAPSULE(S);?
     Route: 048
     Dates: start: 20171014, end: 20171105
  5. MAGNESIUM [Concomitant]
     Active Substance: MAGNESIUM

REACTIONS (14)
  - Fatigue [None]
  - Wheezing [None]
  - Crying [None]
  - Nausea [None]
  - Dizziness [None]
  - Abdominal discomfort [None]
  - Diarrhoea [None]
  - Suicidal ideation [None]
  - Eye pain [None]
  - Pain [None]
  - Cognitive disorder [None]
  - Asthma [None]
  - Alopecia [None]
  - Headache [None]

NARRATIVE: CASE EVENT DATE: 20171024
